FAERS Safety Report 14070893 (Version 3)
Quarter: 2017Q4

REPORT INFORMATION
  Report Type: Report from Study
  Country: US (occurrence: US)
  Receive Date: 20171011
  Receipt Date: 20171101
  Transmission Date: 20180321
  Serious: Yes (Hospitalization, Other)
  Sender: FDA-Public Use
  Company Number: US-GILEAD-2017-0297916

PATIENT
  Age: 78 Year
  Sex: Female
  Weight: 69.84 kg

DRUGS (11)
  1. SILDENAFIL. [Concomitant]
     Active Substance: SILDENAFIL
  2. SPIRONOLACTONE. [Concomitant]
     Active Substance: SPIRONOLACTONE
  3. DILTIAZEM XR [Concomitant]
     Active Substance: DILTIAZEM
  4. DIGOXIN. [Concomitant]
     Active Substance: DIGOXIN
  5. AMBRISENTAN [Suspect]
     Active Substance: AMBRISENTAN
     Indication: PULMONARY ARTERIAL HYPERTENSION
     Dosage: 5 MG, QD
     Route: 048
     Dates: start: 20170801
  6. WARFARIN [Concomitant]
     Active Substance: WARFARIN
  7. FENTANYL. [Concomitant]
     Active Substance: FENTANYL
  8. BUDESONIDE. [Concomitant]
     Active Substance: BUDESONIDE
  9. GABAPENTIN. [Concomitant]
     Active Substance: GABAPENTIN
  10. QVAR [Concomitant]
     Active Substance: BECLOMETHASONE DIPROPIONATE
  11. PANTOPRAZOLE [Concomitant]
     Active Substance: PANTOPRAZOLE

REACTIONS (3)
  - Aphasia [Recovered/Resolved]
  - Speech disorder [Recovered/Resolved]
  - Intentional dose omission [Not Recovered/Not Resolved]

NARRATIVE: CASE EVENT DATE: 20171002
